FAERS Safety Report 5990697-7 (Version None)
Quarter: 2008Q4

REPORT INFORMATION
  Report Type: 
  Country: None (occurrence: None)
  Receive Date: 20081211
  Receipt Date: 20081203
  Transmission Date: 20090506
  Serious: Yes (Other)
  Sender: FDA-Public Use
  Company Number: PHHY2008DE30995

PATIENT
  Age: 70 Year
  Sex: Male

DRUGS (2)
  1. EXELON [Suspect]
     Dosage: 4.6MG/24HOURS
     Route: 062
  2. VOLTAREN [Interacting]
     Route: 061

REACTIONS (2)
  - CONFUSIONAL STATE [None]
  - DRUG INTERACTION [None]
